FAERS Safety Report 16373569 (Version 2)
Quarter: 2019Q2

REPORT INFORMATION
  Report Type: Spontaneous
  Country: None (occurrence: CI)
  Receive Date: 20190530
  Receipt Date: 20190530
  Transmission Date: 20190711
  Serious: Yes (Other)
  Sender: FDA-Public Use
  Company Number: CI-POPULATION COUNCIL, INC.-2067607

PATIENT
  Sex: Female

DRUGS (1)
  1. JADELLE [Suspect]
     Active Substance: LEVONORGESTREL
     Route: 023
     Dates: start: 2016

REACTIONS (2)
  - Pregnancy with contraceptive device [None]
  - Drug ineffective [None]
